FAERS Safety Report 22803685 (Version 4)
Quarter: 2023Q4

REPORT INFORMATION
  Report Type: Spontaneous
  Country: AE (occurrence: AE)
  Receive Date: 20230809
  Receipt Date: 20231030
  Transmission Date: 20240109
  Serious: Yes (Other)
  Sender: FDA-Public Use
  Company Number: AE-PFIZER INC-PV202300133672

PATIENT
  Age: 11 Year
  Sex: Male

DRUGS (1)
  1. SOMATROGON [Suspect]
     Active Substance: SOMATROGON
     Dosage: UNK

REACTIONS (3)
  - Insulin-like growth factor decreased [Unknown]
  - Device information output issue [Unknown]
  - Incorrect dose administered by device [Unknown]
